FAERS Safety Report 20095011 (Version 1)
Quarter: 2021Q4

REPORT INFORMATION
  Report Type: Spontaneous
  Country: AU (occurrence: AU)
  Receive Date: 20211122
  Receipt Date: 20211122
  Transmission Date: 20220304
  Serious: Yes (Other)
  Sender: FDA-Public Use
  Company Number: AU-GILEAD-2021-0556217

PATIENT

DRUGS (2)
  1. SOVALDI [Suspect]
     Active Substance: SOFOSBUVIR
     Indication: Hepatitis C
     Route: 065
  2. DACLATASVIR [Suspect]
     Active Substance: DACLATASVIR
     Indication: Hepatitis C
     Route: 065

REACTIONS (1)
  - Hepatocellular carcinoma [Unknown]
